FAERS Safety Report 6444556-6 (Version None)
Quarter: 2009Q4

REPORT INFORMATION
  Report Type: 
  Country: None (occurrence: None)
  Receive Date: 20091118
  Receipt Date: 20090813
  Transmission Date: 20100525
  Serious: No
  Sender: FDA-Public Use
  Company Number: A0802127A

PATIENT
  Age: 63 Year
  Sex: Male

DRUGS (6)
  1. COREG CR [Suspect]
     Indication: DRUG USE FOR UNKNOWN INDICATION
     Dosage: 10MG PER DAY
     Route: 048
     Dates: start: 20090727
  2. PROVIGIL [Concomitant]
  3. LISINOPRIL [Concomitant]
  4. LEXAPRO [Concomitant]
  5. SIMVASTATIN [Concomitant]
  6. DIURETIC [Concomitant]

REACTIONS (1)
  - FATIGUE [None]
